FAERS Safety Report 10544471 (Version 1)
Quarter: 2014Q4

REPORT INFORMATION
  Report Type: Spontaneous
  Country: US (occurrence: None)
  Receive Date: 20141016
  Receipt Date: 20141016
  Transmission Date: 20150529
  Serious: Yes (Hospitalization)
  Sender: FDA-Public Use
  Company Number: 2014GMK010168

PATIENT
  Age: 73 Year
  Sex: Male
  Weight: 113.4 kg

DRUGS (11)
  1. ATORVASTATIN [Concomitant]
     Active Substance: ATORVASTATIN
  2. GABAPENTIN(GABAPENTIN) TABLET, 600 MG [Suspect]
     Active Substance: GABAPENTIN
     Indication: NEUROPATHY PERIPHERAL
     Route: 048
     Dates: start: 201305
  3. PROTONIX(PANTOPRAZOLE SODIUM SESQUIHYDRATE) [Concomitant]
  4. ULTRAM(TRAMADOL HYDROCHLORIDE) [Concomitant]
  5. CELEXA/00582602/(CITALOPRAM HYDROBROMIDE) [Concomitant]
  6. LANTUS [Concomitant]
     Active Substance: INSULIN GLARGINE
  7. FLOMAX/01280302/(TAMSULOSIN HYDROCHLORIDE) [Concomitant]
  8. CARVEDILOL(CARVEDILOL) [Concomitant]
  9. PLAVIX(CLOPIDOGREL BISULFATE) [Concomitant]
  10. AMARYL(GLIMEPIRIDE) [Concomitant]
  11. IRON [Concomitant]
     Active Substance: IRON

REACTIONS (5)
  - Pain in extremity [None]
  - Erythema [None]
  - Drug ineffective [None]
  - Urinary tract infection [None]
  - Off label use [None]
